FAERS Safety Report 5801842-8 (Version None)
Quarter: 2008Q3

REPORT INFORMATION
  Report Type: 
  Country: None (occurrence: None)
  Receive Date: 20080707
  Receipt Date: 20080627
  Transmission Date: 20090109
  Serious: Yes (Hospitalization)
  Sender: FDA-Public Use
  Company Number: US-MERCK-0806USA08962

PATIENT
  Age: 67 Year
  Sex: Female

DRUGS (1)
  1. JANUVIA [Suspect]
     Route: 048
     Dates: start: 20070101

REACTIONS (3)
  - ABNORMAL BEHAVIOUR [None]
  - BACK PAIN [None]
  - PHARMACEUTICAL PRODUCT COMPLAINT [None]
